FAERS Safety Report 14741143 (Version 1)
Quarter: 2018Q2

REPORT INFORMATION
  Report Type: Spontaneous
  Country: US (occurrence: US)
  Receive Date: 20180404
  Receipt Date: 20180404
  Transmission Date: 20180711
  Serious: Yes (Other)
  Sender: FDA-Public Use
  Company Number: None

PATIENT
  Age: 25 Year
  Sex: Male
  Weight: 63 kg

DRUGS (5)
  1. LORAZEPAM 2 MG [Concomitant]
     Dates: start: 20180330
  2. BENADRYL [Concomitant]
     Active Substance: DIPHENHYDRAMINE HYDROCHLORIDE
     Dates: start: 20180330
  3. HALDOL [Suspect]
     Active Substance: HALOPERIDOL
     Indication: MANIA
     Dates: start: 20180330, end: 20180404
  4. THORAZINE 100 MG [Concomitant]
     Dates: start: 20180330
  5. LITHIUM 300 MG [Concomitant]
     Dates: start: 20180330

REACTIONS (3)
  - Tachycardia [None]
  - Dystonia [None]
  - Oculogyric crisis [None]

NARRATIVE: CASE EVENT DATE: 20180404
